FAERS Safety Report 25954388 (Version 2)
Quarter: 2025Q4

REPORT INFORMATION
  Report Type: Report from Study
  Country: CA (occurrence: CA)
  Receive Date: 20251023
  Receipt Date: 20251117
  Transmission Date: 20260118
  Serious: No
  Sender: JOHNSON AND JOHNSON
  Company Number: CA-JNJFOC-20251003076

PATIENT
  Age: 60 Year
  Sex: Female

DRUGS (1)
  1. GUSELKUMAB [Suspect]
     Active Substance: GUSELKUMAB
     Indication: Psoriasis
     Route: 065

REACTIONS (3)
  - Incorrect dose administered [Unknown]
  - Needle issue [Unknown]
  - Accidental exposure to product [Unknown]

NARRATIVE: CASE EVENT DATE: 20251002
